FAERS Safety Report 24654198 (Version 1)
Quarter: 2024Q4

REPORT INFORMATION
  Report Type: Spontaneous
  Country: US (occurrence: None)
  Receive Date: 20241122
  Receipt Date: 20241122
  Transmission Date: 20250114
  Serious: Yes (Life-Threatening, Hospitalization)
  Sender: Public
  Company Number: None

PATIENT
  Age: 29 Year
  Sex: Female
  Weight: 63 kg

DRUGS (8)
  1. LISDEXAMFETAMINE [Suspect]
     Active Substance: LISDEXAMFETAMINE
     Indication: Attention deficit hyperactivity disorder
     Dosage: 1 CAPSULE DAILY ORAL
     Route: 048
     Dates: start: 20241023, end: 20241023
  2. LEXAPRO [Concomitant]
     Active Substance: ESCITALOPRAM OXALATE
  3. BUSPAR [Concomitant]
  4. YAZ [Concomitant]
  5. singular [Concomitant]
  6. ALLEGRA [Concomitant]
     Active Substance: FEXOFENADINE HYDROCHLORIDE
  7. probiotic [Concomitant]
  8. MELATONIN [Concomitant]
     Active Substance: MELATONIN

REACTIONS (19)
  - Metabolic encephalopathy [None]
  - Inappropriate antidiuretic hormone secretion [None]
  - Nausea [None]
  - Headache [None]
  - Visual impairment [None]
  - Gait inability [None]
  - Feeling abnormal [None]
  - Confusional state [None]
  - Agitation [None]
  - Dyskinesia [None]
  - Bladder dilatation [None]
  - Blood sodium decreased [None]
  - Blood magnesium decreased [None]
  - Blood potassium decreased [None]
  - Blood lactic acid increased [None]
  - Liver function test increased [None]
  - Polyuria [None]
  - Brain fog [None]
  - Unresponsive to stimuli [None]

NARRATIVE: CASE EVENT DATE: 20241023
